FAERS Safety Report 4334107-4 (Version None)
Quarter: 2004Q2

REPORT INFORMATION
  Report Type: 
  Country: None (occurrence: None)
  Receive Date: 20040402
  Receipt Date: 20040318
  Transmission Date: 20050107
  Serious: Yes (Hospitalization)
  Sender: FDA-Public Use
  Company Number: 235730

PATIENT
  Sex: Male
  Weight: 3.3 kg

DRUGS (6)
  1. ACTRAPID PENFILL HM(GE) 3 ML(INSULIN HUMAN) SOLUTION FOR INJECTION, 10 [Suspect]
     Indication: DIABETES MELLITUS
     Dosage: 102 IU, QD, INTRAUTERINE
     Route: 015
     Dates: start: 20030606
  2. INSULATARD PENFILL (INSULIN HUMAN) [Concomitant]
  3. BENZYLPENICILLIN [Concomitant]
  4. GENTACIDIN (GENTAMICIN SULFATE) [Concomitant]
  5. HEPARIN [Concomitant]
  6. MICONAZOLE [Concomitant]

REACTIONS (7)
  - CYANOSIS NEONATAL [None]
  - HYPOGLYCAEMIA NEONATAL [None]
  - INJECTION SITE NECROSIS [None]
  - JAUNDICE NEONATAL [None]
  - MATERNAL DRUGS AFFECTING FOETUS [None]
  - NEONATAL APNOEIC ATTACK [None]
  - PREMATURE RUPTURE OF MEMBRANES [None]
